FAERS Safety Report 19394940 (Version 1)
Quarter: 2021Q2

REPORT INFORMATION
  Report Type: Report from Study
  Country: CN (occurrence: CN)
  Receive Date: 20210609
  Receipt Date: 20210609
  Transmission Date: 20210717
  Serious: Yes (Other)
  Sender: FDA-Public Use
  Company Number: CN-TAKEDA-2021TUS023664

PATIENT
  Age: 54 Year
  Sex: Female
  Weight: 61 kg

DRUGS (23)
  1. CHLORHEXIDINE GLUCONATE. [Concomitant]
     Active Substance: CHLORHEXIDINE GLUCONATE
     Indication: INFECTION PROPHYLAXIS
     Dosage: UNK UNK, QD
     Dates: start: 20210421, end: 20210421
  2. PALONOSETRON HYDROCHLORIDE. [Concomitant]
     Active Substance: PALONOSETRON HYDROCHLORIDE
     Indication: PROPHYLAXIS OF NAUSEA AND VOMITING
     Dosage: 0.25 MILLIGRAM, QD
     Route: 042
     Dates: start: 20210225, end: 20210226
  3. CYCLOPHOSPHAMIDE. [Concomitant]
     Active Substance: CYCLOPHOSPHAMIDE
     Indication: PLASMA CELL MYELOMA
     Dosage: 2 GRAM, QD
     Route: 042
     Dates: start: 20210226, end: 20210226
  4. NIFEDIPINE. [Concomitant]
     Active Substance: NIFEDIPINE
     Indication: HYPERTENSION
     Dosage: 30 MILLIGRAM, QD
     Route: 048
     Dates: start: 2017
  5. LEVOFLOXACIN. [Concomitant]
     Active Substance: LEVOFLOXACIN
     Indication: INFECTION PROPHYLAXIS
     Dosage: UNK UNK, QD
     Dates: start: 20210421, end: 20210421
  6. DEXAMETHASONE SODIUM PHOSPHATE. [Concomitant]
     Active Substance: DEXAMETHASONE SODIUM PHOSPHATE
     Indication: PLASMA CELL MYELOMA
     Dosage: 2.5 MILLIGRAM, QD
     Route: 042
     Dates: start: 20210421, end: 20210421
  7. LEVOCARNITINE. [Concomitant]
     Active Substance: LEVOCARNITINE
     Indication: PROPHYLAXIS
     Dosage: 3 GRAM
     Route: 042
     Dates: start: 20210225, end: 20210226
  8. DEXAMETHASONE ACETATE [Concomitant]
     Active Substance: DEXAMETHASONE ACETATE
     Indication: PLASMA CELL MYELOMA
     Dosage: 0.75 GRAM, QD
     Route: 048
     Dates: start: 20210205, end: 20210206
  9. CHLORHEXIDINE ACETATE [Concomitant]
     Active Substance: CHLORHEXIDINE ACETATE
     Indication: INFECTION PROPHYLAXIS
     Dosage: 1 GRAM, QD
     Dates: start: 20210421, end: 20210421
  10. DEXAMETHASONE SODIUM PHOSPHATE. [Concomitant]
     Active Substance: DEXAMETHASONE SODIUM PHOSPHATE
     Indication: IMMUNOSUPPRESSION
     Dosage: 5 MILLIGRAM, QD
     Route: 042
     Dates: start: 20210423, end: 20210423
  11. SODIUM BICARBONATE. [Concomitant]
     Active Substance: SODIUM BICARBONATE
     Indication: URINE ALKALINISATION THERAPY
     Dosage: 0.5 GRAM, TID
     Route: 048
     Dates: start: 20210225, end: 20210226
  12. BICYCLOL [Concomitant]
     Active Substance: BICYCLOL
     Indication: PROPHYLAXIS
     Dosage: 50 MILLIGRAM, QD
     Route: 048
     Dates: start: 20210205, end: 20210205
  13. MUPIROCIN. [Concomitant]
     Active Substance: MUPIROCIN
     Indication: INFECTION PROPHYLAXIS
     Dosage: 1 GRAM, QD
     Dates: start: 20210421, end: 20210421
  14. URSODEOXYCHOLIC ACID [Concomitant]
     Active Substance: URSODIOL
     Indication: INFECTION PROPHYLAXIS
     Dosage: 0.25 GRAM, QD
     Route: 048
     Dates: start: 20210421, end: 20210421
  15. PANTOPRAZOLE SODIUM. [Concomitant]
     Active Substance: PANTOPRAZOLE SODIUM
     Indication: PROPHYLAXIS
     Dosage: 40 MILLIGRAM, QD
     Route: 042
     Dates: start: 20210205, end: 20210205
  16. PANTOPRAZOLE SODIUM. [Concomitant]
     Active Substance: PANTOPRAZOLE SODIUM
     Dosage: 80 MILLIGRAM, QD
     Route: 042
     Dates: start: 20210225, end: 20210226
  17. CHLORHEXIDINE [Concomitant]
     Active Substance: CHLORHEXIDINE
     Indication: INFECTION PROPHYLAXIS
     Dosage: 10 MILLILITER
     Route: 050
     Dates: start: 20210205, end: 20210205
  18. METRONIDAZOLE AND SODIUM CHLORIDE [Concomitant]
     Indication: INFECTION PROPHYLAXIS
     Dosage: 0.5 GRAM, QD
     Route: 041
     Dates: start: 20210421, end: 20210421
  19. LORATADINE. [Concomitant]
     Active Substance: LORATADINE
     Indication: ALLERGY PROPHYLAXIS
     Dosage: 10 MILLIGRAM
     Route: 048
     Dates: start: 20210423, end: 20210423
  20. IXAZOMIB [Suspect]
     Active Substance: IXAZOMIB
     Indication: PLASMA CELL MYELOMA
     Dosage: 4 MILLIGRAM, 1/WEEK
     Route: 048
     Dates: start: 20210205
  21. MESNA. [Concomitant]
     Active Substance: MESNA
     Indication: PROPHYLAXIS
     Dosage: 0.4 GRAM
     Route: 042
     Dates: start: 20210226, end: 20210226
  22. SODIUM BICARBONATE. [Concomitant]
     Active Substance: SODIUM BICARBONATE
     Indication: ACIDOSIS
     Dosage: UNK
     Route: 041
     Dates: start: 20210423, end: 20210423
  23. FUROSEMIDE. [Concomitant]
     Active Substance: FUROSEMIDE
     Indication: POLYURIA
     Dosage: 20 MILLIGRAM
     Route: 042
     Dates: start: 20210423, end: 20210423

REACTIONS (7)
  - Nausea [Recovered/Resolved]
  - Hypokalaemia [Unknown]
  - Hypocalcaemia [Recovered/Resolved]
  - Abdominal pain upper [Recovered/Resolved]
  - Vomiting [Recovered/Resolved]
  - Diarrhoea [Recovered/Resolved]
  - White blood cell count decreased [Unknown]

NARRATIVE: CASE EVENT DATE: 20210226
